FAERS Safety Report 12923895 (Version 1)
Quarter: 2016Q4

REPORT INFORMATION
  Report Type: Spontaneous
  Country: US (occurrence: US)
  Receive Date: 20161109
  Receipt Date: 20161109
  Transmission Date: 20170207
  Serious: Yes (Disabling)
  Sender: FDA-Public Use
  Company Number: None

PATIENT
  Age: 49 Year
  Sex: Male
  Weight: 113.4 kg

DRUGS (16)
  1. LEVOFLOXACIN 750MG/150 ML SOLN [Suspect]
     Active Substance: LEVOFLOXACIN
     Indication: CELLULITIS
     Dosage: 3 BAGS PER DAY 750ML - 1 PILL PER DAY 750ML - MORNING/NOON/NIGHT - IV + 10 PILLS
     Dates: start: 20160425, end: 20160505
  2. VITAMIN B12 [Concomitant]
     Active Substance: CYANOCOBALAMIN
  3. LEVOFLOXACIN 750MG/150 ML SOLN [Suspect]
     Active Substance: LEVOFLOXACIN
     Indication: INFECTION
     Dosage: 3 BAGS PER DAY 750ML - 1 PILL PER DAY 750ML - MORNING/NOON/NIGHT - IV + 10 PILLS
     Dates: start: 20160425, end: 20160505
  4. ATENOLOL. [Concomitant]
     Active Substance: ATENOLOL
  5. HYDROCHLOROTHIAZIDE AND LISINOPRIL [Concomitant]
     Active Substance: HYDROCHLOROTHIAZIDE\LISINOPRIL
  6. HYDROCODONE [Concomitant]
     Active Substance: HYDROCODONE
  7. FISH OIL [Concomitant]
     Active Substance: FISH OIL
  8. JARDIANCE [Concomitant]
     Active Substance: EMPAGLIFLOZIN
  9. LEVOFLOXACIN 750MG/150 ML SOLN [Suspect]
     Active Substance: LEVOFLOXACIN
     Indication: HOSPITALISATION
     Dosage: 3 BAGS PER DAY 750ML - 1 PILL PER DAY 750ML - MORNING/NOON/NIGHT - IV + 10 PILLS
     Dates: start: 20160425, end: 20160505
  10. GLIPIZIDE. [Concomitant]
     Active Substance: GLIPIZIDE
  11. METFORMIN [Concomitant]
     Active Substance: METFORMIN HYDROCHLORIDE
  12. OMEPRAZOLE. [Concomitant]
     Active Substance: OMEPRAZOLE
  13. LIPITOR [Concomitant]
     Active Substance: ATORVASTATIN CALCIUM
  14. ETODOLAC. [Concomitant]
     Active Substance: ETODOLAC
  15. CYCLOBENZAPRINE [Concomitant]
     Active Substance: CYCLOBENZAPRINE
  16. GABAPENTIN. [Concomitant]
     Active Substance: GABAPENTIN

REACTIONS (9)
  - Muscle spasms [None]
  - Pain in extremity [None]
  - Muscle strain [None]
  - Diabetes mellitus inadequate control [None]
  - Arthralgia [None]
  - Muscular weakness [None]
  - Nerve compression [None]
  - Asthenia [None]
  - Myalgia [None]

NARRATIVE: CASE EVENT DATE: 20160808
